FAERS Safety Report 17794017 (Version 7)
Quarter: 2021Q1

REPORT INFORMATION
  Report Type: Report from Study
  Country: US (occurrence: US)
  Receive Date: 20200515
  Receipt Date: 20210104
  Transmission Date: 20210419
  Serious: Yes (Other)
  Sender: FDA-Public Use
  Company Number: US-MYLANLABS-2020M1042715

PATIENT
  Age: 35 Year
  Sex: Female
  Weight: 95 kg

DRUGS (2)
  1. GLATIRAMER ACETATE INJECTION [Suspect]
     Active Substance: GLATIRAMER ACETATE
     Indication: MULTIPLE SCLEROSIS
     Dosage: 40 MILLIGRAM, 3XW
     Route: 058
  2. GLATIRAMER ACETATE INJECTION [Suspect]
     Active Substance: GLATIRAMER ACETATE
     Indication: RELAPSING-REMITTING MULTIPLE SCLEROSIS
     Dosage: 40 MILLIGRAM, 3XW
     Route: 058
     Dates: start: 20200409

REACTIONS (19)
  - Injection site urticaria [Not Recovered/Not Resolved]
  - Hypoaesthesia [Unknown]
  - Wrong device used [Unknown]
  - Injection site induration [Unknown]
  - Administration site bruise [Unknown]
  - Treatment noncompliance [Unknown]
  - Incorrect dose administered by product [Unknown]
  - Administration site swelling [Unknown]
  - Weight increased [Unknown]
  - Ear discomfort [Unknown]
  - Injection site haemorrhage [Unknown]
  - Dizziness [Unknown]
  - Inappropriate schedule of product administration [Recovered/Resolved]
  - Injection site extravasation [Unknown]
  - Nausea [Unknown]
  - Product administration error [Unknown]
  - Multiple sclerosis relapse [Unknown]
  - Injection site reaction [Unknown]
  - Injection site pain [Not Recovered/Not Resolved]

NARRATIVE: CASE EVENT DATE: 20200413
